FAERS Safety Report 9608563 (Version 2)
Quarter: 2013Q4

REPORT INFORMATION
  Report Type: Spontaneous
  Country: BR (occurrence: BR)
  Receive Date: 20131009
  Receipt Date: 20131106
  Transmission Date: 20140711
  Serious: Yes (Life-Threatening, Hospitalization, Other)
  Sender: FDA-Public Use
  Company Number: BR-PFIZER INC-2013287767

PATIENT
  Age: 67 Year
  Sex: Female

DRUGS (8)
  1. ATENOLOL [Suspect]
     Indication: HYPERTENSION
     Dosage: 50 MG, 2X/DAY
     Route: 048
  2. ATACAND HCT [Suspect]
     Indication: HYPERTENSION
     Dosage: 16/12.5 MG, DAILY
     Route: 048
     Dates: start: 2010, end: 201310
  3. CRESTOR [Suspect]
     Indication: BLOOD CHOLESTEROL INCREASED
     Dosage: 20 MG DAILY
     Route: 048
  4. BRILINTA [Suspect]
     Indication: VENOUS OCCLUSION
     Dosage: 90 MG, 2X/DAY
     Route: 048
     Dates: start: 201310
  5. CONTRAST MEDIA [Suspect]
     Dosage: UNK
  6. FEMOSTON CONTI [Concomitant]
     Indication: HORMONE REPLACEMENT THERAPY
     Dosage: UNK
     Route: 065
  7. PANTOPRAZOLE [Concomitant]
     Indication: PROPHYLAXIS
     Dosage: 40 MG, UNK
     Route: 065
  8. ASPIRINA [Concomitant]
     Indication: VENOUS OCCLUSION
     Dosage: UNK
     Route: 065
     Dates: start: 201310

REACTIONS (5)
  - Anaphylactic shock [Recovered/Resolved]
  - Pulmonary embolism [Recovered/Resolved]
  - Venous occlusion [Recovered/Resolved]
  - Haematoma [Not Recovered/Not Resolved]
  - Off label use [Not Recovered/Not Resolved]
